FAERS Safety Report 8686050 (Version 2)
Quarter: 2012Q4

REPORT INFORMATION
  Report Type: 
  Country: US (occurrence: US)
  Receive Date: 20120726
  Receipt Date: 20121022
  Transmission Date: 20130627
  Serious: No
  Sender: FDA-Public Use
  Company Number: US-ASTRAZENECA-2011SE58205

PATIENT
  Age: 58 Year
  Sex: Male
  Weight: 74.8 kg

DRUGS (3)
  1. SEROQUEL XR [Suspect]
     Indication: SLEEP DISORDER
     Route: 048
     Dates: start: 201109
  2. PREDNISONE [Concomitant]
     Dosage: FREQUENCY AS REQUIRED
  3. BABY ASPIRIN [Concomitant]

REACTIONS (5)
  - Insomnia [Unknown]
  - Asthma [Unknown]
  - Off label use [Unknown]
  - Intentional drug misuse [Unknown]
  - Drug dose omission [Unknown]
